FAERS Safety Report 13944690 (Version 1)
Quarter: 2017Q3

REPORT INFORMATION
  Report Type: Spontaneous
  Country: ZA (occurrence: ZA)
  Receive Date: 20170907
  Receipt Date: 20170907
  Transmission Date: 20171128
  Serious: Yes (Hospitalization, Other)
  Sender: FDA-Public Use
  Company Number: ZA-CIPLA LTD.-2017ZA16040

PATIENT

DRUGS (5)
  1. THIAMINE. [Concomitant]
     Active Substance: THIAMINE
     Indication: NEUROPATHY PERIPHERAL
     Dosage: 100 MG, DAILY
     Route: 065
  2. TENOFOVIR/EMTRICITABINE/EFAVIRENZ [Suspect]
     Active Substance: EFAVIRENZ\EMTRICITABINE\TENOFOVIR DISOPROXIL FUMARATE
     Indication: HIV INFECTION
     Dosage: 600 MG, UNK
     Route: 065
  3. PYRIDOXINE [Concomitant]
     Active Substance: PYRIDOXINE
     Indication: NEUROPATHY PERIPHERAL
     Dosage: 25 MG, DAILY
     Route: 065
  4. ISONIAZID. [Concomitant]
     Active Substance: ISONIAZID
     Indication: PROPHYLAXIS
     Dosage: UNK
     Route: 065
  5. GABAPENTIN. [Concomitant]
     Active Substance: GABAPENTIN
     Dosage: 300 MG, DAILY
     Route: 065

REACTIONS (5)
  - Fall [Unknown]
  - Cerebellar syndrome [Recovered/Resolved]
  - Exposure during pregnancy [Unknown]
  - Speech disorder [Recovered/Resolved]
  - Ataxia [Recovered/Resolved]
